FAERS Safety Report 20081021 (Version 2)
Quarter: 2021Q4

REPORT INFORMATION
  Report Type: Spontaneous
  Country: FI (occurrence: FI)
  Receive Date: 20211117
  Receipt Date: 20211201
  Transmission Date: 20220303
  Serious: Yes (Death, Other)
  Sender: FDA-Public Use
  Company Number: FI-SA-SAC20211116001582

PATIENT
  Sex: Female

DRUGS (2)
  1. AGALSIDASE BETA [Suspect]
     Active Substance: AGALSIDASE BETA
     Indication: Fabry^s disease
     Dates: start: 201101, end: 2015
  2. REPLAGAL [Suspect]
     Active Substance: AGALSIDASE ALFA

REACTIONS (2)
  - Death [Fatal]
  - Dementia Alzheimer^s type [Unknown]

NARRATIVE: CASE EVENT DATE: 20150101
